FAERS Safety Report 6450735-4 (Version None)
Quarter: 2009Q4

REPORT INFORMATION
  Report Type: 
  Country: None (occurrence: None)
  Receive Date: 20091120
  Receipt Date: 20091120
  Transmission Date: 20100525
  Serious: Yes (Hospitalization)
  Sender: FDA-Public Use
  Company Number: None

PATIENT
  Sex: Male
  Weight: 97.2966 kg

DRUGS (2)
  1. HEPARIN SODIUM [Suspect]
     Indication: ANTICOAGULANT THERAPY
     Dosage: 25,000 UNITS/ 500 ML PRN IV BOLUS
     Route: 040
     Dates: start: 20091112, end: 20091112
  2. ABCIXIMAB INJECTION 9 MG -4.5ML- WITH 250 ML NACL 0.9% [Suspect]
     Indication: ANTIPLATELET THERAPY
     Dosage: 9 MG BOLUS, 9 MG CONTINUOUS FOR 12 HOURS IV DRIP
     Route: 041
     Dates: start: 20091112, end: 20091112

REACTIONS (2)
  - HYPOTENSION [None]
  - THROMBOCYTOPENIA [None]
